FAERS Safety Report 4533438-2 (Version None)
Quarter: 2004Q4

REPORT INFORMATION
  Report Type: 
  Country: None (occurrence: None)
  Receive Date: 20041210
  Receipt Date: 20040706
  Transmission Date: 20050328
  Serious: No
  Sender: FDA-Public Use
  Company Number: RS004588-USA

PATIENT
  Age: 71 Year
  Sex: Female

DRUGS (5)
  1. ACIPHEX [Suspect]
     Indication: GASTROOESOPHAGEAL REFLUX DISEASE
     Dosage: 10 MG, 1 IN 1 D, ORAL
     Route: 048
     Dates: start: 20040601, end: 20040702
  2. AVANDIA [Concomitant]
  3. LIPITOR [Concomitant]
  4. SECTRAL [Concomitant]
  5. HYZAAR [Concomitant]

REACTIONS (2)
  - BLOOD GLUCOSE INCREASED [None]
  - OEDEMA PERIPHERAL [None]
